FAERS Safety Report 7077340-3 (Version None)
Quarter: 2010Q4

REPORT INFORMATION
  Report Type: 
  Country: None (occurrence: None)
  Receive Date: 20101029
  Receipt Date: 20101029
  Transmission Date: 20110411
  Serious: No
  Sender: FDA-Public Use
  Company Number: None

PATIENT
  Age: 62 Year
  Sex: Male

DRUGS (2)
  1. HYDROXYCHLOROQUINE NOT PROVIDED [Suspect]
     Indication: RHEUMATOID ARTHRITIS
  2. METHOTREXATE NOT PROVIDED [Suspect]

REACTIONS (2)
  - IRRITABILITY [None]
  - NERVOUS SYSTEM DISORDER [None]
